FAERS Safety Report 16851735 (Version 1)
Quarter: 2019Q3

REPORT INFORMATION
  Report Type: Report from Study
  Country: US (occurrence: US)
  Receive Date: 20190925
  Receipt Date: 20190925
  Transmission Date: 20191005
  Serious: Yes (Other)
  Sender: FDA-Public Use
  Company Number: US-PFIZER INC-2019408923

PATIENT
  Age: 69 Year
  Sex: Female

DRUGS (1)
  1. IBRANCE [Suspect]
     Active Substance: PALBOCICLIB
     Indication: BREAST CANCER
     Dosage: 125 MG, CYCLIC, (21 DAYS ON, AND 7 DAYS OFF)
     Route: 048
     Dates: start: 20180828

REACTIONS (7)
  - Neuropathy peripheral [Unknown]
  - Pruritus [Unknown]
  - Burning sensation [Unknown]
  - Oral pain [Unknown]
  - Hypoaesthesia [Unknown]
  - Epistaxis [Unknown]
  - Paraesthesia [Unknown]
